FAERS Safety Report 5916809-9 (Version None)
Quarter: 2008Q4

REPORT INFORMATION
  Report Type: 
  Country: None (occurrence: None)
  Receive Date: 20081013
  Receipt Date: 20081001
  Transmission Date: 20090506
  Serious: Yes (Other)
  Sender: FDA-Public Use
  Company Number: JP-PFIZER INC-2008083027

PATIENT
  Age: 13 Year
  Sex: Female

DRUGS (4)
  1. SOLU-CORTEF [Suspect]
     Indication: MULTIPLE INJURIES
     Route: 042
  2. CORTRIL (TABS) [Suspect]
     Route: 048
  3. VANCOMYCIN HYDROCHLORIDE [Suspect]
     Route: 042
  4. LEVOTHYROXINE SODIUM [Concomitant]
     Route: 048

REACTIONS (1)
  - GENERALISED ERYTHEMA [None]
